FAERS Safety Report 7113045-8 (Version None)
Quarter: 2010Q4

REPORT INFORMATION
  Report Type: 
  Country: None (occurrence: None)
  Receive Date: 20101119
  Receipt Date: 20101109
  Transmission Date: 20110411
  Serious: Yes (Hospitalization, Disabling, Other)
  Sender: FDA-Public Use
  Company Number: CA-JNJFOC-20080804057

PATIENT
  Sex: Female
  Weight: 63.05 kg

DRUGS (5)
  1. TOPAMAX [Suspect]
     Indication: MIGRAINE PROPHYLAXIS
     Route: 048
  2. TOPAMAX [Suspect]
     Route: 048
  3. EFFEXOR XR [Concomitant]
     Indication: DEPRESSION
     Route: 048
  4. MAVIK [Concomitant]
     Indication: HYPERTENSION
     Route: 048
  5. WELLBUTRIN SR [Concomitant]
     Indication: DEPRESSION
     Route: 048

REACTIONS (5)
  - ANGLE CLOSURE GLAUCOMA [None]
  - BLINDNESS [None]
  - CATARACT [None]
  - EYE HAEMORRHAGE [None]
  - HEADACHE [None]
